FAERS Safety Report 7409850-0 (Version None)
Quarter: 2011Q2

REPORT INFORMATION
  Report Type: 
  Country: None (occurrence: None)
  Receive Date: 20110405
  Receipt Date: 20110321
  Transmission Date: 20111010
  Serious: Yes (Hospitalization)
  Sender: FDA-Public Use
  Company Number: 2011AM004097

PATIENT
  Age: 51 Year
  Sex: Female
  Weight: 113.3993 kg

DRUGS (7)
  1. SYMLIN [Suspect]
     Indication: TYPE 2 DIABETES MELLITUS
     Dosage: QID;SC
     Route: 058
     Dates: start: 20110301, end: 20110320
  2. APIDRA [Concomitant]
  3. SYMLIN [Suspect]
     Indication: TYPE 2 DIABETES MELLITUS
     Dosage: 180 MCG;TID;SC ; 120 MCG;QID;SC ; 60 MCG;QID;SC
     Route: 058
     Dates: start: 20060101, end: 20090101
  4. SYMLIN [Suspect]
     Indication: TYPE 2 DIABETES MELLITUS
     Dosage: 180 MCG;TID;SC ; 120 MCG;QID;SC ; 60 MCG;QID;SC
     Route: 058
     Dates: start: 20090101, end: 20110101
  5. SYMLIN [Suspect]
     Indication: TYPE 2 DIABETES MELLITUS
     Dosage: 180 MCG;TID;SC ; 120 MCG;QID;SC ; 60 MCG;QID;SC
     Route: 058
     Dates: start: 20050101, end: 20060101
  6. LANTUS [Concomitant]
  7. SYMLIN [Suspect]
     Indication: TYPE 2 DIABETES MELLITUS
     Dosage: QID;SC
     Route: 058
     Dates: start: 20110301, end: 20110301

REACTIONS (9)
  - WEIGHT INCREASED [None]
  - BLOOD GLUCOSE INCREASED [None]
  - BLOOD GLUCOSE DECREASED [None]
  - NAUSEA [None]
  - APPENDICECTOMY [None]
  - ASTHENIA [None]
  - SPEECH DISORDER [None]
  - DRUG PRESCRIBING ERROR [None]
  - DIZZINESS [None]
